FAERS Safety Report 4511161-8 (Version None)
Quarter: 2004Q4

REPORT INFORMATION
  Report Type: 
  Country: None (occurrence: None)
  Receive Date: 20041012
  Receipt Date: 20040518
  Transmission Date: 20050328
  Serious: Yes (Hospitalization)
  Sender: FDA-Public Use
  Company Number: A03200401585

PATIENT
  Age: 84 Year
  Sex: Male

DRUGS (8)
  1. ROXATRAL - ALFUZOSIN HYDROCHLORIDE - TABLET PR - 10 MG [Suspect]
     Indication: NOCTURIA
     Dosage: 10 MG OD, ORAL
     Route: 048
     Dates: start: 20040506, end: 20040506
  2. CAPTOPRIL [Concomitant]
  3. HYDROCHLOROTHIAZIDE [Concomitant]
  4. AMIODARONE [Concomitant]
  5. ATORVASTATIN [Concomitant]
  6. OXYBUTYNIN [Concomitant]
  7. MULTI-VITAMINS [Concomitant]
  8. ACETYLSALICYLIC ACID [Concomitant]

REACTIONS (3)
  - DIZZINESS [None]
  - LOSS OF CONSCIOUSNESS [None]
  - ORTHOSTATIC HYPOTENSION [None]
